FAERS Safety Report 9512497 (Version 2)
Quarter: 2013Q3

REPORT INFORMATION
  Report Type: Spontaneous
  Country: IT (occurrence: IT)
  Receive Date: 20130910
  Receipt Date: 20130923
  Transmission Date: 20140515
  Serious: Yes (Hospitalization)
  Sender: FDA-Public Use
  Company Number: IT-PFIZER INC-2013258034

PATIENT
  Age: 85 Year
  Sex: Male

DRUGS (7)
  1. TORVAST [Suspect]
     Indication: HYPERLIPIDAEMIA
     Dosage: 10 MG, DAILY
     Route: 048
     Dates: start: 20120417, end: 20130417
  2. ALTIAZEM [Suspect]
     Indication: HYPERTENSION
     Dosage: 180 MG, DAILY
     Route: 048
     Dates: start: 20120417, end: 20130417
  3. SOLDESAM [Concomitant]
     Dosage: 4 MG, UNK
     Route: 048
     Dates: start: 20120417, end: 20130417
  4. KEPPRA [Concomitant]
     Dosage: 1 DF, UNK
     Route: 048
     Dates: start: 20120417, end: 20130417
  5. MONOCINQUE [Concomitant]
     Dosage: 20 MG, UNK
     Route: 048
     Dates: start: 20120417, end: 20130417
  6. CLEXANE [Concomitant]
     Dosage: 1 DF, UNK
     Route: 058
  7. ZESTRIL [Concomitant]
     Dosage: 20 MG, UNK
     Route: 048
     Dates: start: 20120417, end: 20130417

REACTIONS (1)
  - Diabetes mellitus [Unknown]
